FAERS Safety Report 11620158 (Version 2)
Quarter: 2015Q4

REPORT INFORMATION
  Report Type: Spontaneous
  Country: US (occurrence: US)
  Receive Date: 20151012
  Receipt Date: 20151015
  Transmission Date: 20160304
  Serious: No
  Sender: FDA-Public Use
  Company Number: US-SA-2015SA129874

PATIENT
  Age: 66 Year
  Sex: Female

DRUGS (7)
  1. AFREZZA [Suspect]
     Active Substance: INSULIN HUMAN
     Indication: TYPE 1 DIABETES MELLITUS
     Dosage: FORM: INHALATIONAL POWDER DOSE:4 UNIT(S)
     Route: 065
  2. AFREZZA [Suspect]
     Active Substance: INSULIN HUMAN
     Indication: TYPE 1 DIABETES MELLITUS
     Dosage: FORM: INHALATIONAL POWDER?FREQUENCY: INCREASE TO 8 UNITS ONE TIME DOSE:8 UNIT(S)
     Route: 065
  3. AFREZZA [Suspect]
     Active Substance: INSULIN HUMAN
     Indication: TYPE 1 DIABETES MELLITUS
     Dosage: FORM: INHALATIONAL POWDER DOSE:4 UNIT(S)
     Route: 065
  4. AFREZZA [Suspect]
     Active Substance: INSULIN HUMAN
     Indication: TYPE 1 DIABETES MELLITUS
     Dosage: FORM: INHALATIONAL POWDER DOSE:4 UNIT(S)
     Route: 065
  5. AFREZZA [Suspect]
     Active Substance: INSULIN HUMAN
     Indication: TYPE 1 DIABETES MELLITUS
     Dosage: FORM: INHALATIONAL POWDER?FREQUENCY: INCREASE TO 8 UNITS ONE TIME DOSE:8 UNIT(S)
     Route: 065
  6. HUMALOG [Concomitant]
     Active Substance: INSULIN LISPRO
     Dosage: DOSE: 6-8UNITS
  7. AFREZZA [Suspect]
     Active Substance: INSULIN HUMAN
     Indication: TYPE 1 DIABETES MELLITUS
     Dosage: FORM: INHALATIONAL POWDER?FREQUENCY: INCREASE TO 8 UNITS ONE TIME DOSE:8 UNIT(S)
     Route: 065

REACTIONS (3)
  - Product use issue [Unknown]
  - Blood glucose increased [Not Recovered/Not Resolved]
  - Drug ineffective [Unknown]
